FAERS Safety Report 6661118-6 (Version None)
Quarter: 2010Q1

REPORT INFORMATION
  Report Type: 
  Country: None (occurrence: None)
  Receive Date: 20100331
  Receipt Date: 20100322
  Transmission Date: 20100710
  Serious: Yes (Hospitalization, Other)
  Sender: FDA-Public Use
  Company Number: US-ROCHE-692530

PATIENT
  Age: 61 Year
  Sex: Female
  Weight: 43.3 kg

DRUGS (2)
  1. MYCOPHENOLATE MOFETIL [Suspect]
     Route: 065
  2. SIROLIMUS [Suspect]
     Route: 065

REACTIONS (2)
  - PNEUMONIA BORDETELLA [None]
  - SMALL INTESTINAL OBSTRUCTION [None]
